FAERS Safety Report 23464596 (Version 1)
Quarter: 2024Q1

REPORT INFORMATION
  Report Type: Spontaneous
  Country: US (occurrence: US)
  Receive Date: 20240201
  Receipt Date: 20240201
  Transmission Date: 20240410
  Serious: No
  Sender: FDA-Public Use
  Company Number: US-UNITED THERAPEUTICS-UNT-2024-002294

PATIENT

DRUGS (3)
  1. REMODULIN [Suspect]
     Active Substance: TREPROSTINIL
     Indication: Product used for unknown indication
     Dosage: UNK, CONTINUING
     Route: 058
  2. CARBOXYMETHYLCELLULOSE\GELATIN\MINERAL OIL\PECTIN [Suspect]
     Active Substance: CARBOXYMETHYLCELLULOSE\GELATIN\MINERAL OIL\PECTIN
     Indication: Product used for unknown indication
     Dosage: UNK
     Route: 065
  3. ZYRTEC [Suspect]
     Active Substance: CETIRIZINE HYDROCHLORIDE
     Indication: Dermatitis contact
     Dosage: UNK
     Route: 065

REACTIONS (3)
  - Infusion site pain [Unknown]
  - Dermatitis contact [Not Recovered/Not Resolved]
  - Therapy partial responder [Unknown]

NARRATIVE: CASE EVENT DATE: 20220913
